FAERS Safety Report 13806340 (Version 14)
Quarter: 2019Q2

REPORT INFORMATION
  Report Type: Spontaneous
  Country: JP (occurrence: JP)
  Receive Date: 20170728
  Receipt Date: 20190425
  Transmission Date: 20190711
  Serious: Yes (Death, Hospitalization, Other)
  Sender: FDA-Public Use
  Company Number: JP-PFIZER INC-2017326993

PATIENT
  Age: 3 Year
  Sex: Female
  Weight: 13.6 kg

DRUGS (9)
  1. PREDNISOLONE. [Concomitant]
     Active Substance: PREDNISOLONE
     Indication: LYMPHANGIOMA
     Dosage: UNK
     Route: 048
  2. FUROSEMIDE. [Concomitant]
     Active Substance: FUROSEMIDE
     Indication: OEDEMA
     Dosage: 12 MG, UNK
     Route: 048
     Dates: start: 20170401
  3. RAPALIMUS [Suspect]
     Active Substance: SIROLIMUS
     Indication: LYMPHANGIOMA
     Dosage: UNK
     Route: 048
     Dates: start: 201704
  4. L-CARBOCISTEINE [Concomitant]
     Active Substance: CARBOCYSTEINE
     Indication: PRODUCTIVE COUGH
     Dosage: 0.7 G, UNK
     Route: 048
     Dates: start: 20190217
  5. PROPRANOLOL HYDROCHLORIDE. [Concomitant]
     Active Substance: PROPRANOLOL HYDROCHLORIDE
     Indication: HYPERTENSION
  6. L-CARTIN [Concomitant]
     Active Substance: LEVOCARNITINE HYDROCHLORIDE
     Indication: CARNITINE DEFICIENCY
     Dosage: 400 MG, UNK
     Route: 048
     Dates: start: 20180724
  7. PROPRANOLOL HYDROCHLORIDE. [Concomitant]
     Active Substance: PROPRANOLOL HYDROCHLORIDE
     Indication: LYMPHANGIOMA
     Dosage: 60 MG, UNK
     Route: 048
     Dates: start: 20170401
  8. BAKTAR [Concomitant]
     Active Substance: SULFAMETHOXAZOLE\TRIMETHOPRIM
     Indication: PROPHYLAXIS
     Dosage: 0.6 G, UNK
     Route: 048
     Dates: start: 20170329
  9. BISOLVON [Concomitant]
     Active Substance: BROMHEXINE HYDROCHLORIDE
     Indication: PRODUCTIVE COUGH
     Dosage: 0.2 G, UNK
     Route: 048
     Dates: start: 20190217

REACTIONS (5)
  - Off label use [Unknown]
  - Drug level increased [Unknown]
  - Hyperlipidaemia [Unknown]
  - Gastrointestinal hypomotility [Unknown]
  - Pancreatitis relapsing [Unknown]
